FAERS Safety Report 8562026 (Version 2)
Quarter: 2012Q4

REPORT INFORMATION
  Report Type: 
  Country: US (occurrence: US)
  Receive Date: 20120515
  Receipt Date: 20120926
  Transmission Date: 20130627
  Serious: Yes (Hospitalization, Other)
  Sender: FDA-Public Use
  Company Number: US-JNJFOC-20120508864

PATIENT
  Age: 41 None
  Sex: Female

DRUGS (4)
  1. LEVAQUIN [Suspect]
     Indication: POST PROCEDURAL PNEUMONIA
     Route: 048
     Dates: start: 200602
  2. LEVAQUIN [Suspect]
     Indication: PNEUMONIA
     Route: 042
     Dates: start: 20080610, end: 20080610
  3. LEVOTHYROXINE SODIUM [Concomitant]
     Indication: HYPOTHYROIDISM
     Route: 065
  4. VIVELLE [Concomitant]
     Indication: MENOPAUSE
     Route: 065

REACTIONS (6)
  - Rotator cuff syndrome [Recovering/Resolving]
  - Rotator cuff syndrome [Recovering/Resolving]
  - Plantar fasciitis [Unknown]
  - Tendonitis [Recovering/Resolving]
  - Adverse event [Unknown]
  - Tendonitis [Recovering/Resolving]
